FAERS Safety Report 12966017 (Version 2)
Quarter: 2017Q1

REPORT INFORMATION
  Report Type: Spontaneous
  Country: IL (occurrence: IL)
  Receive Date: 20161122
  Receipt Date: 20170201
  Transmission Date: 20170428
  Serious: Yes (Other)
  Sender: FDA-Public Use
  Company Number: IL-PFIZER INC-2016193456

PATIENT
  Age: 33 Year
  Sex: Male

DRUGS (1)
  1. ELELYSO [Suspect]
     Active Substance: TALIGLUCERASE ALFA
     Indication: GAUCHER^S DISEASE
     Dosage: 1200 UNITS ONCE EVERY 2 WEEKS
     Route: 042

REACTIONS (7)
  - Ear pain [Recovering/Resolving]
  - Tricuspid valve incompetence [Unknown]
  - Fatigue [Unknown]
  - Osteopenia [Unknown]
  - Echocardiogram abnormal [Unknown]
  - Hypertension [Unknown]
  - Oropharyngeal pain [Recovering/Resolving]

NARRATIVE: CASE EVENT DATE: 201610
